FAERS Safety Report 12959068 (Version 1)
Quarter: 2016Q4

REPORT INFORMATION
  Report Type: Spontaneous
  Country: US (occurrence: US)
  Receive Date: 20161121
  Receipt Date: 20161121
  Transmission Date: 20170207
  Serious: No
  Sender: FDA-Public Use
  Company Number: US-JNJFOC-20161011494

PATIENT

DRUGS (1)
  1. IMBRUVICA [Suspect]
     Active Substance: IBRUTINIB
     Indication: CHRONIC LYMPHOCYTIC LEUKAEMIA
     Route: 065
     Dates: start: 20160804

REACTIONS (6)
  - Head discomfort [Unknown]
  - Migraine [Unknown]
  - Cataract [Not Recovered/Not Resolved]
  - Skin fissures [Unknown]
  - Photopsia [Unknown]
  - Headache [Unknown]

NARRATIVE: CASE EVENT DATE: 201609
